FAERS Safety Report 18428411 (Version 2)
Quarter: 2020Q4

REPORT INFORMATION
  Report Type: Spontaneous
  Country: US (occurrence: US)
  Receive Date: 20201026
  Receipt Date: 20201221
  Transmission Date: 20210114
  Serious: No
  Sender: FDA-Public Use
  Company Number: US-BIOHAVEN PHARMACEUTICALS-2020BHV00378

PATIENT
  Age: 65 Year
  Sex: Female
  Weight: 68.48 kg

DRUGS (6)
  1. NURTEC ODT [Suspect]
     Active Substance: RIMEGEPANT SULFATE
     Indication: MIGRAINE
     Dosage: 75 MG, AS NEEDED
     Route: 048
     Dates: start: 20200820, end: 20200901
  2. SYNTHROID [Concomitant]
     Active Substance: LEVOTHYROXINE SODIUM
  3. HYDROCODONE 5-325 [Concomitant]
     Active Substance: HYDROCODONE BITARTRATE
  4. MULTIVITAMINS [Concomitant]
     Active Substance: VITAMINS
  5. GABAPENTIN. [Concomitant]
     Active Substance: GABAPENTIN
  6. OMEGA-3 ACIDS [Concomitant]
     Active Substance: OMEGA-3 FATTY ACIDS

REACTIONS (2)
  - Drug ineffective [Recovered/Resolved]
  - Migraine [Not Recovered/Not Resolved]

NARRATIVE: CASE EVENT DATE: 20200821
